FAERS Safety Report 15254870 (Version 1)
Quarter: 2018Q3

REPORT INFORMATION
  Report Type: Spontaneous
  Country: US (occurrence: US)
  Receive Date: 20180717
  Receipt Date: 20180717
  Transmission Date: 20181010
  Serious: No
  Sender: FDA-Public Use
  Company Number: None

PATIENT
  Age: 54 Year
  Sex: Female
  Weight: 57.6 kg

DRUGS (1)
  1. ZOLPIDEM [Suspect]
     Active Substance: ZOLPIDEM\ZOLPIDEM TARTRATE
     Indication: INSOMNIA
     Dosage: ?          QUANTITY:0.5 DF DOSAGE FORM;?
     Route: 048
     Dates: start: 20180706

REACTIONS (4)
  - Drug abuse [None]
  - Product substitution issue [None]
  - Drug ineffective [None]
  - Somnolence [None]

NARRATIVE: CASE EVENT DATE: 20180707
